FAERS Safety Report 19445494 (Version 1)
Quarter: 2021Q2

REPORT INFORMATION
  Report Type: Spontaneous
  Country: CN (occurrence: CN)
  Receive Date: 20210622
  Receipt Date: 20210622
  Transmission Date: 20210717
  Serious: Yes (Hospitalization)
  Sender: FDA-Public Use
  Company Number: CN-LUPIN PHARMACEUTICALS INC.-2021-09856

PATIENT
  Age: 27 Year
  Sex: Female

DRUGS (2)
  1. METHYLERGONOVINE [Suspect]
     Active Substance: METHYLERGONOVINE
     Indication: POSTPARTUM HAEMORRHAGE
     Dosage: UNK
     Route: 065
  2. METHYLERGONOVINE [Suspect]
     Active Substance: METHYLERGONOVINE
     Indication: UTERINE SPASM

REACTIONS (1)
  - Drug ineffective [Unknown]
